FAERS Safety Report 15645622 (Version 1)
Quarter: 2018Q4

REPORT INFORMATION
  Report Type: Spontaneous
  Country: JP (occurrence: JP)
  Receive Date: 20181121
  Receipt Date: 20181121
  Transmission Date: 20190205
  Serious: Yes (Other)
  Sender: FDA-Public Use
  Company Number: JP-ALLERGAN-1854196US

PATIENT

DRUGS (2)
  1. URSODEOXYCHOLIC ACID - BP [Suspect]
     Active Substance: URSODIOL
     Indication: CHOLANGITIS
     Dosage: 600 MG, QD
     Route: 048
  2. URSODEOXYCHOLIC ACID - BP [Suspect]
     Active Substance: URSODIOL
     Dosage: ACTUAL: TWICE A DAY (6 TABLETS IN TOTAL)
     Route: 048

REACTIONS (3)
  - Product dose omission [Unknown]
  - Cholelithiasis [Unknown]
  - Overdose [Unknown]
